FAERS Safety Report 4523399-4 (Version None)
Quarter: 2004Q4

REPORT INFORMATION
  Report Type: 
  Country: None (occurrence: None)
  Receive Date: 20041209
  Receipt Date: 20041129
  Transmission Date: 20050328
  Serious: Yes (Death, Hospitalization)
  Sender: FDA-Public Use
  Company Number: US-2004-031028

PATIENT
  Age: 57 Year
  Sex: Female

DRUGS (6)
  1. BETASERON [Suspect]
     Indication: RELAPSING-REMITTING MULTIPLE SCLEROSIS
     Dosage: 8 MIU, EVERY 2D, SUBCUTANEOUS
     Route: 058
     Dates: start: 20020916, end: 20040603
  2. THYROID PREPARATIONS [Concomitant]
  3. GLUCOVANCE [Concomitant]
  4. LISINOPRIL [Concomitant]
  5. MICARDIS [Concomitant]
  6. HYDROCHLORZIDE [Concomitant]

REACTIONS (6)
  - ALOPECIA [None]
  - BLOOD CREATINE INCREASED [None]
  - CHOLELITHIASIS [None]
  - FATIGUE [None]
  - HYPOTENSION [None]
  - PANCREATITIS [None]
